FAERS Safety Report 15772889 (Version 1)
Quarter: 2018Q4

REPORT INFORMATION
  Report Type: Spontaneous
  Country: CA (occurrence: CA)
  Receive Date: 20181228
  Receipt Date: 20181228
  Transmission Date: 20190205
  Serious: Yes (Other)
  Sender: FDA-Public Use
  Company Number: CA-SHIRE-CA201849049

PATIENT

DRUGS (2)
  1. MEZAVANT [Suspect]
     Active Substance: MESALAMINE
     Indication: CROHN^S DISEASE
     Dosage: 1.2 G, 4 EVERY 1 DAY(S)
     Route: 048
  2. MEZAVANT [Suspect]
     Active Substance: MESALAMINE
     Indication: OFF LABEL USE

REACTIONS (4)
  - Pyrexia [Recovered/Resolved]
  - Hepatic enzyme increased [Recovered/Resolved]
  - Flank pain [Recovered/Resolved]
  - Off label use [Unknown]
